FAERS Safety Report 8078631-X (Version None)
Quarter: 2012Q1

REPORT INFORMATION
  Report Type: 
  Country: None (occurrence: None)
  Receive Date: 20120124
  Receipt Date: 20120110
  Transmission Date: 20120608
  Serious: Yes (Hospitalization, Other)
  Sender: FDA-Public Use
  Company Number: 2012P1001823

PATIENT
  Age: 65 Year

DRUGS (4)
  1. PHENYTOIN [Suspect]
     Indication: CONVULSION PROPHYLAXIS
     Dosage: 450 MG; QD
     Dates: start: 20090601, end: 20100201
  2. SEPTRA DS [Suspect]
     Indication: URINARY TRACT INFECTION
  3. DEXAMETHASONE [Suspect]
  4. GEMCITABINE [Concomitant]

REACTIONS (23)
  - WEIGHT BEARING DIFFICULTY [None]
  - NAUSEA [None]
  - DYSPHAGIA [None]
  - URINARY TRACT INFECTION [None]
  - HYPERTONIA [None]
  - VOMITING [None]
  - SOMNOLENCE [None]
  - EXTENSOR PLANTAR RESPONSE [None]
  - URINARY INCONTINENCE [None]
  - PERONEAL NERVE PALSY [None]
  - MUSCLE SPASTICITY [None]
  - ELECTROENCEPHALOGRAM ABNORMAL [None]
  - COGNITIVE DISORDER [None]
  - DISORIENTATION [None]
  - UROSEPSIS [None]
  - TOXIC ENCEPHALOPATHY [None]
  - COMPLEX PARTIAL SEIZURES [None]
  - NEUROLOGICAL DECOMPENSATION [None]
  - APRAXIA [None]
  - APHASIA [None]
  - CLONUS [None]
  - URINARY RETENTION [None]
  - LETHARGY [None]
